FAERS Safety Report 9633517 (Version 2)
Quarter: 2013Q4

REPORT INFORMATION
  Report Type: Report from Study
  Country: NZ (occurrence: NZ)
  Receive Date: 20131021
  Receipt Date: 20131212
  Transmission Date: 20140711
  Serious: Yes (Other)
  Sender: FDA-Public Use
  Company Number: PHHY2013NZ117132

PATIENT
  Sex: Male

DRUGS (2)
  1. CLOZARIL [Suspect]
     Dosage: 50-150 MG, QD
     Dates: start: 20020914, end: 201308
  2. CLOZARIL [Suspect]
     Dosage: 150 MG, QD (50 MG MANE AND 100 MG NOCTE)

REACTIONS (2)
  - Autism spectrum disorder [Unknown]
  - Anxiety [Unknown]
